FAERS Safety Report 9380771 (Version 1)
Quarter: 2013Q3

REPORT INFORMATION
  Report Type: Report from Study
  Country: US (occurrence: US)
  Receive Date: 20130702
  Receipt Date: 20130702
  Transmission Date: 20140515
  Serious: Yes (Hospitalization)
  Sender: FDA-Public Use
  Company Number: US-PFIZER INC-HQ7825628FEB2001

PATIENT
  Age: 66 Year
  Sex: Male
  Weight: 104 kg

DRUGS (7)
  1. TEMSIROLIMUS [Suspect]
     Indication: RENAL CELL CARCINOMA
     Dosage: 25 MG, WEEKLY
     Route: 042
     Dates: start: 20000815
  2. LIPITOR [Concomitant]
     Dosage: UNK
  3. EPOGEN [Concomitant]
     Dosage: UNK
  4. COMPAZINE [Concomitant]
     Dosage: UNK
  5. ACCUPRIL [Concomitant]
     Dosage: UNK
  6. VIOXX [Concomitant]
     Dosage: UNK
  7. WARFARIN [Concomitant]
     Dosage: UNK

REACTIONS (3)
  - Renal failure acute [Recovered/Resolved]
  - Dehydration [Recovered/Resolved]
  - Diarrhoea [Recovered/Resolved]
